FAERS Safety Report 13450207 (Version 1)
Quarter: 2017Q2

REPORT INFORMATION
  Report Type: Spontaneous
  Country: HK (occurrence: HK)
  Receive Date: 20170417
  Receipt Date: 20170417
  Transmission Date: 20170830
  Serious: Yes (Life-Threatening, Other)
  Sender: FDA-Public Use
  Company Number: HK-BAUSCH-BL-2017-010053

PATIENT
  Sex: Male

DRUGS (11)
  1. DACARBAZINE. [Suspect]
     Active Substance: DACARBAZINE
     Indication: HODGKIN^S DISEASE
     Route: 065
  2. BRENTUXIMAB VEDOTIN [Suspect]
     Active Substance: BRENTUXIMAB VEDOTIN
     Route: 065
  3. BLEOMYCIN [Suspect]
     Active Substance: BLEOMYCIN SULFATE
     Indication: HODGKIN^S DISEASE
     Route: 065
  4. VINBLASTINE [Suspect]
     Active Substance: VINBLASTINE
     Indication: HODGKIN^S DISEASE
     Route: 065
  5. CISPLATIN. [Suspect]
     Active Substance: CISPLATIN
     Indication: HODGKIN^S DISEASE
     Route: 065
  6. BENDAMUSTINE [Suspect]
     Active Substance: BENDAMUSTINE
     Indication: HODGKIN^S DISEASE
     Route: 065
  7. GEMCITABINE [Suspect]
     Active Substance: GEMCITABINE\GEMCITABINE HYDROCHLORIDE
     Indication: HODGKIN^S DISEASE
     Route: 065
  8. DEXAMETHASONE. [Suspect]
     Active Substance: DEXAMETHASONE
     Indication: HODGKIN^S DISEASE
     Route: 065
  9. DOXORUBICIN [Suspect]
     Active Substance: DOXORUBICIN
     Indication: HODGKIN^S DISEASE
     Route: 065
  10. CYTARABINE. [Suspect]
     Active Substance: CYTARABINE
     Indication: HODGKIN^S DISEASE
     Route: 065
  11. BRENTUXIMAB VEDOTIN [Suspect]
     Active Substance: BRENTUXIMAB VEDOTIN
     Indication: HODGKIN^S DISEASE
     Route: 065

REACTIONS (1)
  - Drug ineffective [Unknown]
